FAERS Safety Report 5099682-3 (Version None)
Quarter: 2006Q3

REPORT INFORMATION
  Report Type: 
  Country: None (occurrence: None)
  Receive Date: 20060908
  Receipt Date: 20060828
  Transmission Date: 20061208
  Serious: Yes (Other)
  Sender: FDA-Public Use
  Company Number: NL-ROCHE-461140

PATIENT
  Sex: Male

DRUGS (1)
  1. ACCUTANE [Suspect]
     Indication: DRUG USE FOR UNKNOWN INDICATION
     Dosage: THE PATIENT TOOK ROACCUTANE DURING SEVERAL MONTHS IN THE YEAR 1995.
     Route: 048
     Dates: start: 19950115

REACTIONS (3)
  - ANXIETY [None]
  - FEEDING DISORDER [None]
  - PSYCHOTIC DISORDER [None]
